FAERS Safety Report 21422951 (Version 3)
Quarter: 2022Q4

REPORT INFORMATION
  Report Type: Spontaneous
  Country: JP (occurrence: JP)
  Receive Date: 20221007
  Receipt Date: 20221205
  Transmission Date: 20230113
  Serious: Yes (Hospitalization, Other)
  Sender: FDA-Public Use
  Company Number: JP-PFIZER INC-PV202200076789

PATIENT
  Age: 60 Year
  Sex: Male
  Weight: 87 kg

DRUGS (14)
  1. PAXLOVID [Suspect]
     Active Substance: NIRMATRELVIR\RITONAVIR
     Indication: COVID-19 treatment
     Dosage: [PF-07321332 300 MG]/[RITONAVIR 100 MG]; 2X/DAY
     Route: 048
     Dates: start: 20220801, end: 20220802
  2. BENIDIPINE HYDROCHLORIDE [Concomitant]
     Active Substance: BENIDIPINE HYDROCHLORIDE
     Dosage: 2 MG, 1X/DAY
     Route: 048
  3. ROSUVASTATIN CALCIUM [Concomitant]
     Active Substance: ROSUVASTATIN CALCIUM
     Dosage: 5 MG, 1X/DAY
     Route: 048
  4. ALLOPURINOL [Concomitant]
     Active Substance: ALLOPURINOL
     Indication: Hyperuricaemia
     Dosage: 100 MG, 1X/DAY
     Route: 048
  5. CANAGLIFLOZIN [Concomitant]
     Active Substance: CANAGLIFLOZIN
     Indication: Type 2 diabetes mellitus
     Dosage: 100 MG, 1X/DAY
     Route: 048
     Dates: start: 20210601
  6. URSO [Concomitant]
     Active Substance: URSODIOL
     Dosage: 200 MG, 2X/DAY
     Route: 048
  7. METFORMIN [Concomitant]
     Active Substance: METFORMIN HYDROCHLORIDE
     Indication: Type 2 diabetes mellitus
     Dosage: 500 MG, 2X/DAY
     Route: 048
  8. BEZAFIBRATE [Concomitant]
     Active Substance: BEZAFIBRATE
     Indication: Hyperlipidaemia
     Dosage: 200 MG, 2X/DAY
     Route: 048
  9. ISOSORBIDE DINITRATE [Concomitant]
     Active Substance: ISOSORBIDE DINITRATE
     Indication: Myocardial ischaemia
     Dosage: 20 MG, 2X/DAY
     Route: 048
  10. IFENPRODIL [Concomitant]
     Active Substance: IFENPRODIL
     Indication: Dizziness
     Dosage: 20 MG, 2X/DAY
     Route: 048
  11. IFENPRODIL [Concomitant]
     Active Substance: IFENPRODIL
     Indication: Cerebral haemorrhage
  12. MEPENZOLATE BROMIDE [Concomitant]
     Active Substance: MEPENZOLATE BROMIDE
     Indication: Irritable bowel syndrome
     Dosage: 15 MG, 3X/DAY
     Route: 048
  13. BERBERINE\GERANIUM [Concomitant]
     Active Substance: BERBERINE\GERANIUM
     Indication: Diarrhoea
     Dosage: 2 DF, 3X/DAY
     Route: 048
  14. HERBALS [Concomitant]
     Active Substance: HERBALS
     Indication: Hyperlipidaemia
     Dosage: 1PACKET, 3X/DAY
     Route: 048

REACTIONS (9)
  - Gastrointestinal perforation [Recovered/Resolved]
  - Duodenal ulcer [Unknown]
  - Abdominal pain upper [Unknown]
  - Nausea [Unknown]
  - Eating disorder [Unknown]
  - Aspartate aminotransferase increased [Unknown]
  - Alanine aminotransferase increased [Unknown]
  - Blood triglycerides increased [Unknown]
  - Blood glucose increased [Unknown]

NARRATIVE: CASE EVENT DATE: 20220802
